FAERS Safety Report 7164741-8 (Version None)
Quarter: 2010Q4

REPORT INFORMATION
  Report Type: 
  Country: None (occurrence: None)
  Receive Date: 20101215
  Receipt Date: 20101209
  Transmission Date: 20110411
  Serious: Yes (Other)
  Sender: FDA-Public Use
  Company Number: BR-SANOFI-AVENTIS-2010SA075088

PATIENT
  Age: 56 Year
  Sex: Male
  Weight: 130 kg

DRUGS (6)
  1. LANTUS [Suspect]
     Route: 058
  2. AUTOPEN 24 [Suspect]
     Dates: start: 20101209
  3. METFORMIN HCL [Concomitant]
     Route: 048
  4. GLUCOBAY [Concomitant]
     Route: 048
  5. PIOGLITAZONE [Concomitant]
     Route: 048
     Dates: start: 20100101
  6. HYDROCHLOROTHIAZIDE/LOSARTAN POTASSIUM [Concomitant]
     Route: 048

REACTIONS (1)
  - OPTIC NEURITIS [None]
